FAERS Safety Report 19839575 (Version 1)
Quarter: 2021Q3

REPORT INFORMATION
  Report Type: Spontaneous
  Country: US (occurrence: US)
  Receive Date: 20210914
  Receipt Date: 20210914
  Transmission Date: 20211014
  Serious: No
  Sender: FDA-Public Use
  Company Number: None

PATIENT
  Age: 73 Year
  Sex: Male
  Weight: 67.13 kg

DRUGS (2)
  1. DABIGATRAN (DABIGATRAN ETEXILATE 150MG CAP,ORAL) [Suspect]
     Active Substance: DABIGATRAN ETEXILATE
     Indication: DEEP VEIN THROMBOSIS
     Route: 048
  2. ENOXAPARIN (ENOXAPARIN 40MG/0.4ML INJ) [Suspect]
     Active Substance: ENOXAPARIN
     Indication: DEEP VEIN THROMBOSIS
     Route: 058
     Dates: start: 20201019

REACTIONS (1)
  - Thrombocytopenia [None]

NARRATIVE: CASE EVENT DATE: 20201019
